FAERS Safety Report 12070346 (Version 1)
Quarter: 2016Q1

REPORT INFORMATION
  Report Type: Spontaneous
  Country: DE (occurrence: DE)
  Receive Date: 20160211
  Receipt Date: 20160211
  Transmission Date: 20160526
  Serious: Yes (Other)
  Sender: FDA-Public Use
  Company Number: GXKR2016DE000805

PATIENT
  Age: 76 Year
  Sex: Female

DRUGS (1)
  1. METOHEXAL [Suspect]
     Active Substance: METOPROLOL SUCCINATE
     Indication: HYPERTENSION
     Dosage: 47.5 MG - 0 - 23.75 MG
     Route: 048

REACTIONS (2)
  - Swelling face [Unknown]
  - Abasia [Unknown]
